FAERS Safety Report 13083122 (Version 2)
Quarter: 2017Q1

REPORT INFORMATION
  Report Type: Spontaneous
  Country: US (occurrence: US)
  Receive Date: 20170104
  Receipt Date: 20170130
  Transmission Date: 20170428
  Serious: No
  Sender: FDA-Public Use
  Company Number: US-TAIHO ONCOLOGY INC-EU-2016-03297

PATIENT
  Age: 69 Year
  Sex: Female

DRUGS (18)
  1. MIRALAX [Concomitant]
     Active Substance: POLYETHYLENE GLYCOL 3350
     Dosage: NI
  2. LOVENOX [Concomitant]
     Active Substance: ENOXAPARIN SODIUM
     Dosage: NI
  3. ESZOPICLONE. [Concomitant]
     Active Substance: ESZOPICLONE
     Dosage: NI
  4. LONSURF [Suspect]
     Active Substance: TIPIRACIL HYDROCHLORIDE\TRIFLURIDINE
     Indication: RECTAL CANCER
     Route: 048
     Dates: start: 20161126
  5. ENOXAPARIN [Concomitant]
     Active Substance: ENOXAPARIN
     Dosage: NI
  6. MUCINEX [Concomitant]
     Active Substance: GUAIFENESIN
     Dosage: NI
  7. PANTHENOL [Concomitant]
     Active Substance: PANTHENOL
     Dosage: NI
  8. PANTOPRAZOLE [Concomitant]
     Active Substance: PANTOPRAZOLE SODIUM
     Dosage: NI
  9. VOLTAREN [Concomitant]
     Active Substance: DICLOFENAC SODIUM
     Dosage: NI
  10. ONDANSETRON [Concomitant]
     Active Substance: ONDANSETRON
     Dosage: NI
  11. TRAZODONE [Concomitant]
     Active Substance: TRAZODONE HYDROCHLORIDE
     Dosage: NI
  12. ATORVASTATIN [Concomitant]
     Active Substance: ATORVASTATIN
     Dosage: NI
  13. VACCINIUM MACROCARPON [Concomitant]
     Active Substance: CRANBERRY
     Dosage: NI
  14. MONTELUKAST [Concomitant]
     Active Substance: MONTELUKAST SODIUM
     Dosage: NI
  15. SINGULAIR [Concomitant]
     Active Substance: MONTELUKAST SODIUM
     Dosage: NI
  16. DIGOX [Concomitant]
     Active Substance: DIGOXIN
     Dosage: NI
  17. METOPROLOL. [Concomitant]
     Active Substance: METOPROLOL
     Dosage: NI
  18. LIPITOR [Concomitant]
     Active Substance: ATORVASTATIN CALCIUM
     Dosage: NI

REACTIONS (6)
  - Nausea [Not Recovered/Not Resolved]
  - Decreased appetite [Not Recovered/Not Resolved]
  - Abdominal pain [Unknown]
  - Fatigue [Unknown]
  - Headache [Not Recovered/Not Resolved]
  - Saliva discolouration [Not Recovered/Not Resolved]

NARRATIVE: CASE EVENT DATE: 201612
